FAERS Safety Report 5109657-3 (Version None)
Quarter: 2006Q3

REPORT INFORMATION
  Report Type: 
  Country: None (occurrence: None)
  Receive Date: 20060918
  Receipt Date: 20060907
  Transmission Date: 20061208
  Serious: Yes (Other)
  Sender: FDA-Public Use
  Company Number: 204569

PATIENT
  Age: 55 Year
  Sex: Male

DRUGS (5)
  1. RITUXAN [Suspect]
     Indication: DIFFUSE LARGE B-CELL LYMPHOMA
     Dosage: 375 MG/M2, INTRAVENOUS
     Route: 042
  2. CYCLOPHOSPHAMIDE [Concomitant]
  3. CYTARABINE [Concomitant]
  4. ETOPOSIDE [Concomitant]
  5. DEXAMETHASONE TAB [Concomitant]

REACTIONS (3)
  - CARDIAC FAILURE [None]
  - LABORATORY TEST ABNORMAL [None]
  - MYOCARDIAL FIBROSIS [None]
